FAERS Safety Report 5082522-6 (Version None)
Quarter: 2006Q3

REPORT INFORMATION
  Report Type: 
  Country: None (occurrence: None)
  Receive Date: 20060817
  Receipt Date: 20060630
  Transmission Date: 20061208
  Serious: Yes (Life-Threatening)
  Sender: FDA-Public Use
  Company Number: GB-ROCHE-454146

PATIENT
  Age: 55 Year
  Sex: Female
  Weight: 95.3 kg

DRUGS (1)
  1. XENICAL [Suspect]
     Indication: OBESITY
     Route: 048
     Dates: start: 20060616

REACTIONS (2)
  - DEPRESSION [None]
  - SUICIDAL IDEATION [None]
